FAERS Safety Report 19027998 (Version 1)
Quarter: 2021Q1

REPORT INFORMATION
  Report Type: Report from Study
  Country: CA (occurrence: CA)
  Receive Date: 20210318
  Receipt Date: 20210318
  Transmission Date: 20210420
  Serious: Yes (Other)
  Sender: FDA-Public Use
  Company Number: CA-BAUSCH-BL-2021-008289

PATIENT
  Sex: Female

DRUGS (2)
  1. SALBUTAMOL SULFATE [Suspect]
     Active Substance: ALBUTEROL SULFATE
     Indication: PRODUCT USED FOR UNKNOWN INDICATION
     Route: 065
  2. NUCALA [Concomitant]
     Active Substance: MEPOLIZUMAB
     Indication: PRODUCT USED FOR UNKNOWN INDICATION
     Route: 042

REACTIONS (9)
  - Blood count abnormal [Unknown]
  - Rheumatoid arthritis [Unknown]
  - Systemic scleroderma [Unknown]
  - Polymyositis [Unknown]
  - Sjogren^s syndrome [Unknown]
  - Dermatomyositis [Unknown]
  - Mixed connective tissue disease [Unknown]
  - Autoimmune hepatitis [Unknown]
  - Systemic lupus erythematosus [Unknown]
